FAERS Safety Report 16910851 (Version 1)
Quarter: 2019Q4

REPORT INFORMATION
  Report Type: Spontaneous
  Country: US (occurrence: US)
  Receive Date: 20191012
  Receipt Date: 20191012
  Transmission Date: 20200122
  Serious: No
  Sender: FDA-Public Use
  Company Number: US-BION-007767

PATIENT
  Sex: Female

DRUGS (3)
  1. ESTROGENS CONJUGATED [Concomitant]
     Active Substance: ESTROGENS, CONJUGATED
     Dosage: TWICE A WEEK
  2. MELATONIN [Concomitant]
     Active Substance: MELATONIN
     Dosage: DOSE: 3 MG AT BED TIME
  3. BIONPHARMA^S PROGESTERONE 100 MG CAPSULE [Suspect]
     Active Substance: PROGESTERONE
     Indication: MENOPAUSAL SYMPTOMS
     Dosage: STRENGTH: 100 MG?DOSE: 100 MG AT BED TIME EVERY NIGHT EXCEPT 200 MG ON MON, WED, FRI AND SAT NIGHT
     Route: 048
     Dates: start: 201612

REACTIONS (1)
  - Oropharyngeal pain [Recovering/Resolving]
